FAERS Safety Report 15506984 (Version 1)
Quarter: 2018Q4

REPORT INFORMATION
  Report Type: Spontaneous
  Country: IN (occurrence: IN)
  Receive Date: 20181016
  Receipt Date: 20181016
  Transmission Date: 20190205
  Serious: Yes (Life-Threatening, Hospitalization, Other)
  Sender: FDA-Public Use
  Company Number: IN-CMP PHARMA-2018CMP00033

PATIENT
  Age: 17 Year
  Sex: Female

DRUGS (2)
  1. ISONIAZID. [Suspect]
     Active Substance: ISONIAZID
     Dosage: MORE THAN 20 PILLS (300 MG EACH)
     Route: 048
  2. ISONIAZID. [Suspect]
     Active Substance: ISONIAZID
     Indication: PULMONARY TUBERCULOSIS
     Dosage: 300 MG
     Route: 065
     Dates: start: 201602

REACTIONS (7)
  - Suicide attempt [Recovered/Resolved]
  - Toxicity to various agents [Recovered/Resolved]
  - Coma [Recovered/Resolved]
  - Generalised tonic-clonic seizure [Recovered/Resolved]
  - Liver function test abnormal [Recovered/Resolved]
  - Intentional overdose [Recovered/Resolved]
  - Acidosis [Recovered/Resolved]
